FAERS Safety Report 4895245-0 (Version None)
Quarter: 2006Q1

REPORT INFORMATION
  Report Type: 
  Country: None (occurrence: None)
  Receive Date: 20060130
  Receipt Date: 20060127
  Transmission Date: 20060701
  Serious: Yes (Hospitalization, Other)
  Sender: FDA-Public Use
  Company Number: US-GLAXOSMITHKLINE-A0591303A

PATIENT
  Age: 67 Year
  Sex: Male

DRUGS (3)
  1. COREG [Suspect]
     Indication: HYPERTENSION
     Dosage: 25MG TWICE PER DAY
     Route: 048
  2. DIOVAN [Concomitant]
  3. LIPITOR [Concomitant]

REACTIONS (2)
  - PROSTATECTOMY [None]
  - TRANSIENT ISCHAEMIC ATTACK [None]
